FAERS Safety Report 6191556-X (Version None)
Quarter: 2009Q2

REPORT INFORMATION
  Report Type: 
  Country: None (occurrence: None)
  Receive Date: 20090515
  Receipt Date: 20090507
  Transmission Date: 20091009
  Serious: Yes (Other)
  Sender: FDA-Public Use
  Company Number: US-BAYER-200911439BCC

PATIENT
  Age: 18 Year
  Sex: Female
  Weight: 68 kg

DRUGS (2)
  1. BACTINE [Suspect]
     Indication: DRUG USE FOR UNKNOWN INDICATION
     Dosage: 4 OUNCE
     Dates: start: 20090506
  2. ADDERALL 10 [Concomitant]

REACTIONS (4)
  - CORNEAL DISORDER [None]
  - EYE DISORDER [None]
  - EYE IRRITATION [None]
  - EYE SWELLING [None]
